FAERS Safety Report 6477546-8 (Version None)
Quarter: 2009Q4

REPORT INFORMATION
  Report Type: 
  Country: None (occurrence: None)
  Receive Date: 20091207
  Receipt Date: 20091106
  Transmission Date: 20100525
  Serious: No
  Sender: FDA-Public Use
  Company Number: US-BAYER-200939091NA

PATIENT
  Age: 31 Year
  Sex: Female

DRUGS (1)
  1. MIRENA [Suspect]
     Indication: CONTRACEPTION
     Dosage: CONTINUOUS
     Route: 015
     Dates: start: 20061201

REACTIONS (7)
  - ACNE [None]
  - AMENORRHOEA [None]
  - BACK PAIN [None]
  - FATIGUE [None]
  - HYPOMENORRHOEA [None]
  - MEDICAL DEVICE COMPLICATION [None]
  - METRORRHAGIA [None]
